FAERS Safety Report 25030043 (Version 2)
Quarter: 2025Q1

REPORT INFORMATION
  Report Type: Report from Study
  Country: ZA (occurrence: ZA)
  Receive Date: 20250303
  Receipt Date: 20250306
  Transmission Date: 20250408
  Serious: Yes (Other)
  Sender: ROCHE
  Company Number: ZA-ROCHE-3075100

PATIENT
  Sex: Male
  Weight: 59 kg

DRUGS (2)
  1. HEMLIBRA [Suspect]
     Active Substance: EMICIZUMAB-KXWH
     Indication: Factor VIII deficiency
     Route: 058
     Dates: start: 202202
  2. TRAMADOL [Concomitant]
     Active Substance: TRAMADOL

REACTIONS (8)
  - Traumatic haemorrhage [Unknown]
  - Haemorrhage [Unknown]
  - Pain [Unknown]
  - Insomnia [Unknown]
  - Depression [Unknown]
  - Injury [Unknown]
  - Arthralgia [Unknown]
  - Pruritus [Unknown]
